FAERS Safety Report 20228000 (Version 1)
Quarter: 2021Q4

REPORT INFORMATION
  Report Type: Report from Study
  Country: US (occurrence: US)
  Receive Date: 20211224
  Receipt Date: 20211224
  Transmission Date: 20220303
  Serious: Yes (Other)
  Sender: FDA-Public Use
  Company Number: US-JNJFOC-20211249353

PATIENT
  Age: 62 Year
  Sex: Male

DRUGS (1)
  1. SPRAVATO [Suspect]
     Active Substance: ESKETAMINE
     Indication: Product used for unknown indication
     Dates: start: 202106

REACTIONS (5)
  - Hallucination [Recovered/Resolved]
  - Fall [Recovered/Resolved]
  - Gait inability [Unknown]
  - Depression [Recovering/Resolving]
  - Feeling drunk [Unknown]

NARRATIVE: CASE EVENT DATE: 20210101
